FAERS Safety Report 17227820 (Version 2)
Quarter: 2020Q1

REPORT INFORMATION
  Report Type: Spontaneous
  Country: JP (occurrence: JP)
  Receive Date: 20200103
  Receipt Date: 20200221
  Transmission Date: 20200409
  Serious: Yes (Other)
  Sender: FDA-Public Use
  Company Number: JP-ASTRAZENECA-2019SF92000

PATIENT
  Age: 75 Year
  Sex: Male
  Weight: 63 kg

DRUGS (14)
  1. BRILINTA [Suspect]
     Active Substance: TICAGRELOR
     Indication: ACUTE MYOCARDIAL INFARCTION
     Route: 048
     Dates: start: 20191013, end: 20191017
  2. TAKECAB [Concomitant]
     Active Substance: VONOPRAZAN FUMURATE
     Dosage: DOSE UNKNOWN
     Route: 048
  3. CARVEDILOL. [Suspect]
     Active Substance: CARVEDILOL
     Indication: CARDIAC FAILURE
     Route: 048
     Dates: start: 20191003, end: 20191013
  4. ELENTAL [Concomitant]
     Active Substance: AMINO ACIDS\CARBOHYDRATES\MINERALS\SOYBEAN OIL\VITAMINS
     Dosage: DOSE UNKNOWN
     Route: 048
  5. NORADRENALINE [Concomitant]
     Active Substance: NOREPINEPHRINE
     Dosage: DOSE UNKNOWN
     Route: 065
  6. REBAMIPIDE [Concomitant]
     Active Substance: REBAMIPIDE
     Dosage: DOSE UNKNOWN
     Route: 048
  7. DOBUPUM [Concomitant]
     Active Substance: DOBUTAMINE HYDROCHLORIDE
     Dosage: DOSE UNKNOWN
     Route: 065
  8. NOVOLIN R [Concomitant]
     Active Substance: INSULIN HUMAN
     Dosage: DOSE UNKNOWN
     Route: 065
  9. AZOSEMIDE [Concomitant]
     Active Substance: AZOSEMIDE
     Dosage: DOSE UNKNOWN
     Route: 048
  10. KCL CORRECTIVE [Concomitant]
     Dosage: DOSE UNKNOWN
     Route: 065
  11. ALBUMINAR [Concomitant]
     Active Substance: ALBUMIN HUMAN
     Dosage: DOSE UNKNOWN
     Route: 065
  12. CARVEDILOL. [Suspect]
     Active Substance: CARVEDILOL
     Indication: CARDIAC FAILURE
     Route: 048
     Dates: start: 20191015
  13. SELARA [Concomitant]
     Active Substance: EPLERENONE
     Dosage: DOSE UNKNOWN
     Route: 048
  14. FUROSEMIDE. [Concomitant]
     Active Substance: FUROSEMIDE
     Dosage: DOSE UNKNOWN
     Route: 065

REACTIONS (4)
  - Sinus bradycardia [Recovered/Resolved]
  - Atrial fibrillation [Recovered/Resolved]
  - Colitis ischaemic [Unknown]
  - Hyperglycaemia [Unknown]

NARRATIVE: CASE EVENT DATE: 20191015
